FAERS Safety Report 7450380 (Version 3)
Quarter: 2012Q4

REPORT INFORMATION
  Report Type: 
  Country: DE (occurrence: DE)
  Receive Date: 20100701
  Receipt Date: 20121123
  Transmission Date: 20130627
  Serious: Yes (Death, Life-Threatening, Hospitalization, Other)
  Sender: FDA-Public Use
  Company Number: DE-RANBAXY-2010RR-35242

PATIENT
  Age: 89 Year
  Sex: Male
  Weight: 92 kg

DRUGS (2)
  1. SIMVASTATIN [Suspect]
     Indication: PRODUCT USED FOR UNKNOWN INDICATION
     Dosage: 40 mg, qd
     Route: 048
     Dates: start: 2008, end: 20100401
  2. CORDAREX [Suspect]
     Indication: PRODUCT USED FOR UNKNOWN INDICATION
     Dosage: UNK
     Route: 048
     Dates: start: 2000

REACTIONS (2)
  - Renal failure acute [Recovering/Resolving]
  - Renal failure acute [Recovering/Resolving]
